FAERS Safety Report 6217810-0 (Version None)
Quarter: 2009Q2

REPORT INFORMATION
  Report Type: 
  Country: None (occurrence: None)
  Receive Date: 20090608
  Receipt Date: 20090603
  Transmission Date: 20091009
  Serious: Yes (Hospitalization)
  Sender: FDA-Public Use
  Company Number: US-AMGEN-US268741

PATIENT
  Sex: Female

DRUGS (3)
  1. CINACALCET [Suspect]
     Indication: HYPERPARATHYROIDISM SECONDARY
     Route: 048
     Dates: start: 20070411, end: 20080304
  2. EPOGEN [Suspect]
     Route: 042
  3. ASPIRIN [Suspect]
     Route: 048
     Dates: start: 20050126, end: 20080305

REACTIONS (2)
  - LOWER GASTROINTESTINAL HAEMORRHAGE [None]
  - SEPSIS [None]
